FAERS Safety Report 9907586 (Version 1)
Quarter: 2014Q1

REPORT INFORMATION
  Report Type: Spontaneous
  Country: US (occurrence: US)
  Receive Date: 20140218
  Receipt Date: 20140218
  Transmission Date: 20141002
  Serious: Yes (Other)
  Sender: FDA-Public Use
  Company Number: US-ROCHE-1350533

PATIENT
  Age: 57 Year
  Sex: Male

DRUGS (8)
  1. XOLAIR [Suspect]
     Indication: ASTHMA
     Route: 058
  2. ADVAIR HFA [Concomitant]
     Route: 055
  3. ENALAPRIL [Concomitant]
     Route: 065
  4. HCTZ [Concomitant]
     Route: 065
  5. HYDROXYZINE [Concomitant]
     Route: 065
  6. NASONEX [Concomitant]
     Route: 065
  7. SINGULAIR [Concomitant]
     Route: 065
  8. XOPENEX HFA [Concomitant]
     Route: 065

REACTIONS (1)
  - Nasal polypectomy [Unknown]
